FAERS Safety Report 9862218 (Version 2)
Quarter: 2014Q1

REPORT INFORMATION
  Report Type: Report from Study
  Country: CA (occurrence: CA)
  Receive Date: 20140203
  Receipt Date: 20140203
  Transmission Date: 20141002
  Serious: Yes (Other)
  Sender: FDA-Public Use
  Company Number: CA-BRISTOL-MYERS SQUIBB COMPANY-16851719

PATIENT
  Age: 68 Year
  Sex: Female
  Weight: 63 kg

DRUGS (15)
  1. ORENCIA [Suspect]
     Indication: RHEUMATOID ARTHRITIS
     Dosage: INF 7; LAST INF:23AUG12?31MAY12:750MG/4 WKS?2F72016;APR15?CYCLE:8?2K74506;JUL15?3C81662,SEP15
     Route: 042
     Dates: start: 20120531
  2. METHOTREXATE SODIUM INJ [Concomitant]
     Dosage: INJ
  3. CIMZIA [Concomitant]
     Dosage: LAST DOSE: 10APR
  4. PLAQUENIL [Concomitant]
  5. NORFLEX [Concomitant]
  6. FOLIC ACID [Concomitant]
  7. LOSEC [Concomitant]
  8. IBUPROFEN [Concomitant]
  9. ZOPICLONE [Concomitant]
  10. PREDNISONE [Concomitant]
  11. CELEBREX [Concomitant]
  12. CALCIUM [Concomitant]
  13. IRON [Concomitant]
  14. METFORMIN HCL [Concomitant]
  15. LASIX [Concomitant]

REACTIONS (13)
  - Bunion [Unknown]
  - Urinary tract infection [Not Recovered/Not Resolved]
  - Nausea [Not Recovered/Not Resolved]
  - Stomatitis [Not Recovered/Not Resolved]
  - Hyperhidrosis [Not Recovered/Not Resolved]
  - Hot flush [Not Recovered/Not Resolved]
  - Oropharyngeal pain [Unknown]
  - Cough [Not Recovered/Not Resolved]
  - Sinus congestion [Not Recovered/Not Resolved]
  - Cystitis [Not Recovered/Not Resolved]
  - Lower respiratory tract infection [Recovered/Resolved]
  - Fibromyalgia [Recovered/Resolved]
  - Thyroid disorder [Unknown]
